FAERS Safety Report 6856056-X (Version None)
Quarter: 2010Q3

REPORT INFORMATION
  Report Type: 
  Country: None (occurrence: None)
  Receive Date: 20100719
  Receipt Date: 20100707
  Transmission Date: 20110219
  Serious: Yes (Hospitalization)
  Sender: FDA-Public Use
  Company Number: US-CELGENEUS-163-21880-10070604

PATIENT
  Sex: Male
  Weight: 79.45 kg

DRUGS (2)
  1. REVLIMID [Suspect]
     Indication: MULTIPLE MYELOMA
     Route: 048
     Dates: start: 20100513, end: 20100101
  2. REVLIMID [Suspect]
     Route: 048
     Dates: start: 20100706

REACTIONS (2)
  - COLLAPSE OF LUNG [None]
  - LOBAR PNEUMONIA [None]
